FAERS Safety Report 8729831 (Version 2)
Quarter: 2012Q4

REPORT INFORMATION
  Report Type: 
  Country: JP (occurrence: JP)
  Receive Date: 20120817
  Receipt Date: 20120926
  Transmission Date: 20130627
  Serious: Yes (Other)
  Sender: FDA-Public Use
  Company Number: JP-JNJFOC-20120705803

PATIENT
  Age: 36 Year
  Sex: Female
  Weight: 51 kg

DRUGS (12)
  1. REMICADE [Suspect]
     Indication: CROHN^S DISEASE
     Route: 042
     Dates: start: 20110311
  2. REMICADE [Suspect]
     Indication: CROHN^S DISEASE
     Route: 042
     Dates: start: 20110128
  3. REMICADE [Suspect]
     Indication: CROHN^S DISEASE
     Dosage: 5th dose
     Route: 042
     Dates: start: 20101217
  4. REMICADE [Suspect]
     Indication: CROHN^S DISEASE
     Route: 042
     Dates: start: 20101022
  5. REMICADE [Suspect]
     Indication: CROHN^S DISEASE
     Dosage: 4th dose
     Route: 042
  6. REMICADE [Suspect]
     Indication: CROHN^S DISEASE
     Dosage: first dose
     Route: 042
     Dates: start: 20100716
  7. HUMIRA [Suspect]
     Indication: PRODUCT USED FOR UNKNOWN INDICATION
     Route: 065
     Dates: start: 20110422, end: 20110715
  8. UNSPECIFIED INGREDIENT [Suspect]
     Indication: CROHN^S DISEASE
     Route: 048
  9. PENTASA [Concomitant]
     Indication: CROHN^S DISEASE
     Route: 048
     Dates: start: 20100423
  10. ONEALFA [Concomitant]
     Indication: OSTEOPOROSIS
     Route: 048
     Dates: start: 20100423
  11. BIO-THREE [Concomitant]
     Indication: CROHN^S DISEASE
     Route: 048
     Dates: start: 20100917
  12. ISOCOTIN [Concomitant]
     Indication: ANTIBIOTIC PROPHYLAXIS
     Route: 048
     Dates: start: 20100917

REACTIONS (1)
  - Pyoderma gangrenosum [Recovered/Resolved]
